FAERS Safety Report 5061106-X (Version None)
Quarter: 2006Q3

REPORT INFORMATION
  Report Type: 
  Country: None (occurrence: None)
  Receive Date: 20060720
  Receipt Date: 20060710
  Transmission Date: 20061208
  Serious: Yes (Other)
  Sender: FDA-Public Use
  Company Number: 2006085708

PATIENT
  Age: 52 Year
  Sex: Male
  Weight: 56.6996 kg

DRUGS (2)
  1. LIPITOR [Suspect]
     Indication: BLOOD CHOLESTEROL INCREASED
     Dosage: 10 MG (10 MG, 1 IN 1 D)
     Dates: start: 20051101, end: 20060101
  2. SYNTHROID [Concomitant]

REACTIONS (4)
  - AMNESIA [None]
  - HEPATOCELLULAR DAMAGE [None]
  - MYALGIA [None]
  - PAIN IN EXTREMITY [None]
